FAERS Safety Report 8307552-X (Version None)
Quarter: 2012Q2

REPORT INFORMATION
  Report Type: 
  Country: None (occurrence: None)
  Receive Date: 20120424
  Receipt Date: 20120416
  Transmission Date: 20120825
  Serious: Yes (Death, Hospitalization, Other)
  Sender: FDA-Public Use
  Company Number: JP-GENZYME-THYM-1002772

PATIENT
  Sex: Female
  Weight: 52 kg

DRUGS (7)
  1. THYMOGLOBULIN [Suspect]
     Indication: ACUTE GRAFT VERSUS HOST DISEASE
     Dosage: 50 MG, QD
     Route: 042
     Dates: start: 20110811, end: 20110811
  2. ULINASTATIN [Concomitant]
     Indication: DISSEMINATED INTRAVASCULAR COAGULATION
     Dosage: 150000 U, UNK
     Route: 065
     Dates: start: 20110713, end: 20110816
  3. TACROLIMUS [Concomitant]
     Indication: ACUTE GRAFT VERSUS HOST DISEASE
     Dosage: UNK
     Dates: end: 20110808
  4. DANAPAROID SODIUM [Concomitant]
     Indication: DISSEMINATED INTRAVASCULAR COAGULATION
     Dosage: 1250 U, UNK
     Route: 065
     Dates: start: 20110809, end: 20110816
  5. METHYLPREDNISOLONE SODIUM SUCCINATE [Concomitant]
     Indication: PREMEDICATION
     Dosage: 2 MG/KG, QD
     Route: 042
     Dates: start: 20110812
  6. PIPERACILLIN W [Concomitant]
     Indication: INFECTION
     Dosage: 4.5 G, UNK
     Route: 065
     Dates: start: 20110809, end: 20110816
  7. OMEPRAZOLE SODIUM [Concomitant]
     Indication: GASTRIC ULCER
     Dosage: 20 MG, UNK
     Route: 065
     Dates: start: 20110713, end: 20110816

REACTIONS (5)
  - RESPIRATORY DISORDER [None]
  - CARDIAC ARREST [None]
  - TRICHOSPORON INFECTION [None]
  - RENAL DISORDER [None]
  - BLOOD PRESSURE DECREASED [None]
